FAERS Safety Report 5204919-3 (Version None)
Quarter: 2007Q1

REPORT INFORMATION
  Report Type: 
  Country: None (occurrence: None)
  Receive Date: 20070110
  Receipt Date: 20060831
  Transmission Date: 20070707
  Serious: Yes (Hospitalization)
  Sender: FDA-Public Use
  Company Number: US-BRISTOL-MYERS SQUIBB COMPANY-13495676

PATIENT
  Age: 64 Year
  Sex: Female

DRUGS (6)
  1. ABILIFY [Suspect]
     Indication: ANXIETY DISORDER
     Dates: start: 20060809
  2. ABILIFY [Suspect]
     Indication: DEPRESSION
     Dates: start: 20060809
  3. WELLBUTRIN XL [Concomitant]
  4. TRAZODONE HCL [Concomitant]
  5. NEXIUM [Concomitant]
  6. CALCIUM [Concomitant]

REACTIONS (4)
  - AMNESIA [None]
  - DISORIENTATION [None]
  - LOSS OF CONTROL OF LEGS [None]
  - TREMOR [None]
